FAERS Safety Report 8633764 (Version 2)
Quarter: 2013Q2

REPORT INFORMATION
  Report Type: Report from Study
  Country: US (occurrence: US)
  Receive Date: 20120625
  Receipt Date: 20130502
  Transmission Date: 20140414
  Serious: Yes (Other)
  Sender: FDA-Public Use
  Company Number: US-PFIZER INC-2011315033

PATIENT
  Age: 60 Year
  Sex: Female
  Weight: 81.63 kg

DRUGS (6)
  1. LIPITOR [Suspect]
     Indication: BLOOD CHOLESTEROL INCREASED
     Dosage: 20 MG DAILY
     Dates: end: 20111227
  2. CELEBREX [Suspect]
     Indication: ARTHRITIS
     Dosage: 200 MG TWO TIMES A DAY
  3. NEURONTIN [Suspect]
     Dosage: UNK
  4. LYRICA [Suspect]
     Dosage: UNK
  5. METFORMIN [Concomitant]
     Indication: DIABETES MELLITUS
     Dosage: 500 MG ONE TABLET IN MORNING AND TWO TABLETS AT NIGHT
  6. GLIMEPIRIDE [Concomitant]
     Indication: DIABETES MELLITUS
     Dosage: 2 MG, UNK

REACTIONS (4)
  - Intervertebral disc protrusion [Unknown]
  - Road traffic accident [Unknown]
  - Myalgia [Not Recovered/Not Resolved]
  - Limb discomfort [Unknown]
